FAERS Safety Report 5242820-X (Version None)
Quarter: 2007Q1

REPORT INFORMATION
  Report Type: 
  Country: None (occurrence: None)
  Receive Date: 20070215
  Receipt Date: 20070131
  Transmission Date: 20070707
  Serious: Yes (Other)
  Sender: FDA-Public Use
  Company Number: 2007305489

PATIENT
  Sex: Female
  Weight: 59 kg

DRUGS (1)
  1. BENADRYL [Suspect]
     Indication: INSOMNIA
     Dosage: 2 TABLETS EVERY NIGHT, ORAL
     Route: 048
     Dates: start: 20030101, end: 20070101

REACTIONS (3)
  - DRUG ABUSER [None]
  - IRRITABILITY [None]
  - SOMNOLENCE [None]
